FAERS Safety Report 4786756-7 (Version None)
Quarter: 2005Q3

REPORT INFORMATION
  Report Type: 
  Country: None (occurrence: None)
  Receive Date: 20050930
  Receipt Date: 20050919
  Transmission Date: 20060218
  Serious: Yes (Hospitalization, Other)
  Sender: FDA-Public Use
  Company Number: 2005131114

PATIENT
  Sex: Female

DRUGS (12)
  1. CELEBREX [Suspect]
     Indication: ARTHRITIS
     Dosage: 400 MG (200 MG, 2 IN 1 D)
  2. WELLBUTRIN [Concomitant]
  3. EFFEXOR [Concomitant]
  4. RISPERDAL [Concomitant]
  5. ALBUTEROL [Concomitant]
  6. SINGULAIR ^ MERCK^ (MONTELUKAST SODIUM) [Concomitant]
  7. KLONOPIN [Concomitant]
  8. NASONEX [Concomitant]
  9. ADVAIR DISKUS 100/50 [Concomitant]
  10. TRIAMTERENE (TRIAMTEREN) [Concomitant]
  11. VICODIN [Concomitant]
  12. COUMADIN [Concomitant]

REACTIONS (9)
  - ARTHRALGIA [None]
  - CONDITION AGGRAVATED [None]
  - ILL-DEFINED DISORDER [None]
  - INTERVERTEBRAL DISC DEGENERATION [None]
  - INTERVERTEBRAL DISC PROTRUSION [None]
  - LIGAMENT INJURY [None]
  - SCIATICA [None]
  - THROMBOSIS [None]
  - WEIGHT INCREASED [None]
